FAERS Safety Report 9255498 (Version 1)
Quarter: 2013Q2

REPORT INFORMATION
  Report Type: Spontaneous
  Country: GB (occurrence: GB)
  Receive Date: 20130425
  Receipt Date: 20130425
  Transmission Date: 20140414
  Serious: Yes (Other)
  Sender: FDA-Public Use
  Company Number: GB-ALLERGAN-1305971US

PATIENT
  Age: 51 Year
  Sex: Female
  Weight: 68 kg

DRUGS (3)
  1. BOTULINUM TOXIN TYPE A UNK [Suspect]
     Indication: SKIN WRINKLING
     Dosage: UNK, SINGLE
     Route: 030
     Dates: start: 20130318, end: 20130318
  2. ARNICA [Concomitant]
     Indication: PRODUCT USED FOR UNKNOWN INDICATION
  3. CO-CODAMOL [Concomitant]
     Indication: HEADACHE
     Dosage: 3 DF, 1 / 1 DAY
     Dates: start: 20130318, end: 20130319

REACTIONS (11)
  - Iridocyclitis [Not Recovered/Not Resolved]
  - Conjunctivitis [Not Recovered/Not Resolved]
  - Blood pressure increased [Recovering/Resolving]
  - Photophobia [Unknown]
  - Eye pain [Unknown]
  - Ocular hyperaemia [Unknown]
  - Anxiety [Recovering/Resolving]
  - Vomiting [Recovered/Resolved]
  - Dry mouth [Not Recovered/Not Resolved]
  - Diarrhoea [Recovered/Resolved]
  - Fatigue [Recovering/Resolving]
